FAERS Safety Report 8356706-5 (Version None)
Quarter: 2012Q2

REPORT INFORMATION
  Report Type: 
  Country: None (occurrence: None)
  Receive Date: 20120511
  Receipt Date: 20120511
  Transmission Date: 20120825
  Serious: Yes (Hospitalization)
  Sender: FDA-Public Use
  Company Number: None

PATIENT
  Age: 85 Year
  Sex: Female

DRUGS (1)
  1. DEXILANT [Suspect]
     Indication: ULCER
     Dosage: 60 MG DAILY BY MOUTH
     Route: 048
     Dates: start: 20120306, end: 20120321

REACTIONS (4)
  - DRUG HYPERSENSITIVITY [None]
  - BLOOD UREA INCREASED [None]
  - BLOOD CREATININE INCREASED [None]
  - SKIN EXFOLIATION [None]
